FAERS Safety Report 4783405-9 (Version None)
Quarter: 2005Q3

REPORT INFORMATION
  Report Type: 
  Country: None (occurrence: None)
  Receive Date: 20050929
  Receipt Date: 20050823
  Transmission Date: 20060218
  Serious: Yes (Other)
  Sender: FDA-Public Use
  Company Number: US-BRISTOL-MYERS SQUIBB COMPANY-13125455

PATIENT
  Age: 65 Year
  Sex: Female

DRUGS (4)
  1. CYCLOPHOSPHAMIDE [Suspect]
     Indication: STEM CELL TRANSPLANT
     Route: 042
  2. FLUDARABINE PHOSPHATE [Suspect]
     Indication: STEM CELL TRANSPLANT
     Route: 042
  3. FLUCONAZOLE [Concomitant]
  4. ACYCLOVIR [Concomitant]

REACTIONS (1)
  - ENGRAFTMENT SYNDROME [None]
